FAERS Safety Report 12195327 (Version 4)
Quarter: 2017Q2

REPORT INFORMATION
  Report Type: Report from Study
  Country: US (occurrence: US)
  Receive Date: 20160321
  Receipt Date: 20170517
  Transmission Date: 20170830
  Serious: Yes (Hospitalization)
  Sender: FDA-Public Use
  Company Number: US-ACTELION-A-NJ2016-130678

PATIENT
  Age: 57 Year
  Sex: Male

DRUGS (2)
  1. ADCIRCA [Concomitant]
     Active Substance: TADALAFIL
  2. VELETRI [Suspect]
     Active Substance: EPOPROSTENOL
     Indication: PULMONARY ARTERIAL HYPERTENSION
     Dosage: 22 NG/KG, PER MIN
     Route: 042
     Dates: start: 20160115

REACTIONS (14)
  - Device related infection [Unknown]
  - Headache [Unknown]
  - Gastrooesophageal reflux disease [Unknown]
  - Pain in extremity [Unknown]
  - Fluid retention [Recovering/Resolving]
  - Eye disorder [Unknown]
  - Cough [Unknown]
  - Nausea [Unknown]
  - Catheter management [Unknown]
  - Device dislocation [Unknown]
  - Catheter placement [Unknown]
  - Catheter removal [Unknown]
  - Staphylococcal infection [Unknown]
  - Central venous catheterisation [Unknown]
